FAERS Safety Report 13980963 (Version 1)
Quarter: 2017Q3

REPORT INFORMATION
  Report Type: Spontaneous
  Country: US (occurrence: None)
  Receive Date: 20170915
  Receipt Date: 20170915
  Transmission Date: 20171128
  Serious: Yes (Hospitalization)
  Sender: FDA-Public Use
  Company Number: None

PATIENT
  Age: 40 Year
  Sex: Male

DRUGS (7)
  1. SULFAMETHOXAZOLE/TRIMETHOPRIM [Suspect]
     Active Substance: SULFAMETHOXAZOLE\TRIMETHOPRIM
     Indication: CELLULITIS
     Dosage: DOSE AMOUNT - 800/160 MG
     Route: 048
     Dates: start: 20170803, end: 20170812
  2. ACETAMINOPHEN. [Concomitant]
     Active Substance: ACETAMINOPHEN
  3. OLOPATADINE. [Concomitant]
     Active Substance: OLOPATADINE
  4. ASPIRIN. [Concomitant]
     Active Substance: ASPIRIN
  5. ALBUTEROL. [Concomitant]
     Active Substance: ALBUTEROL
  6. DEXTROAMPHETAMINE AND AMPHETAMINE [Concomitant]
  7. SULFAMETHOXAZOLE/TRIMETHOPRIM [Concomitant]
     Active Substance: SULFAMETHOXAZOLE\TRIMETHOPRIM

REACTIONS (2)
  - Drug reaction with eosinophilia and systemic symptoms [None]
  - Pneumonia [None]

NARRATIVE: CASE EVENT DATE: 20170817
